FAERS Safety Report 5850606-8 (Version None)
Quarter: 2008Q3

REPORT INFORMATION
  Report Type: 
  Country: None (occurrence: None)
  Receive Date: 20080818
  Receipt Date: 20080801
  Transmission Date: 20090109
  Serious: Yes (Death)
  Sender: FDA-Public Use
  Company Number: 8035825

PATIENT
  Age: 11 Year
  Sex: Male

DRUGS (14)
  1. PREDNISOLONE [Suspect]
     Indication: IMMUNOSUPPRESSION
     Dosage: 2 MG/KG /D
  2. PREDNISOLONE [Suspect]
     Indication: IMMUNOSUPPRESSION
     Dosage: 2 MG/KG /D PO
     Route: 048
  3. PREDNISOLONE [Suspect]
     Indication: IMMUNOSUPPRESSION
     Dosage: 1 MG/KG /D PO
     Route: 048
  4. PREDNISOLONE [Suspect]
     Indication: IMMUNOSUPPRESSION
     Dosage: 0.75 MG/KG /D PO
     Route: 048
  5. PREDNISOLONE [Suspect]
     Indication: IMMUNOSUPPRESSION
     Dosage: 0.5 MG/KG /D PO
     Route: 048
  6. TACROLIMUS [Suspect]
     Indication: IMMUNOSUPPRESSION
  7. TACROLIMUS [Suspect]
     Indication: IMMUNOSUPPRESSION
  8. TACROLIMUS [Suspect]
     Indication: IMMUNOSUPPRESSION
     Dosage: 0.075 MG/KG 2/D
  9. BASILIXIMAB [Suspect]
     Indication: IMMUNOSUPPRESSION
     Dosage: 20 MG /D
  10. BASILIXIMAB [Suspect]
     Indication: IMMUNOSUPPRESSION
     Dosage: 20 MG /D
  11. SIROLIMUS [Suspect]
     Indication: IMMUNOSUPPRESSION
  12. ORTHOCLONE OKT3 [Suspect]
     Indication: TRANSPLANT REJECTION
  13. RITUXIMAB [Suspect]
     Dosage: 1/W
  14. METHYLPREDNISOLONE 16MG TAB [Suspect]
     Dosage: 2 MG/KG 1/D IV
     Route: 042

REACTIONS (8)
  - EPSTEIN-BARR VIRAEMIA [None]
  - GASTROENTERITIS ADENOVIRUS [None]
  - INTESTINAL TRANSPLANT [None]
  - LIVER TRANSPLANT [None]
  - LYMPHOPENIA [None]
  - RESPIRATORY FAILURE [None]
  - SEPSIS [None]
  - TRANSPLANT REJECTION [None]
